FAERS Safety Report 6367763-X (Version None)
Quarter: 2009Q3

REPORT INFORMATION
  Report Type: 
  Country: None (occurrence: None)
  Receive Date: 20090921
  Receipt Date: 20090909
  Transmission Date: 20100115
  Serious: Yes (Other)
  Sender: FDA-Public Use
  Company Number: US-ELI_LILLY_AND_COMPANY-US200909002051

PATIENT
  Sex: Male

DRUGS (2)
  1. SYMBYAX [Suspect]
     Indication: DEPRESSION
     Dosage: 1 D/F, DAILY (1/D)
     Dates: start: 20090902
  2. THYROID TAB [Concomitant]
     Indication: HYPOTHYROIDISM

REACTIONS (1)
  - SYNCOPE [None]
